FAERS Safety Report 6883591-0 (Version None)
Quarter: 2010Q3

REPORT INFORMATION
  Report Type: 
  Country: None (occurrence: None)
  Receive Date: 20100729
  Receipt Date: 20100723
  Transmission Date: 20110219
  Serious: Yes (Hospitalization)
  Sender: FDA-Public Use
  Company Number: FR-BRISTOL-MYERS SQUIBB COMPANY-15201791

PATIENT
  Age: 75 Year
  Sex: Male

DRUGS (6)
  1. PRAVIGARD PAC (COPACKAGED) [Suspect]
     Dates: start: 20091201
  2. BIPRETERAX [Concomitant]
  3. AMLOR [Concomitant]
  4. PANTOPRAZOLE SODIUM [Concomitant]
  5. VOLTAREN [Concomitant]
  6. OMIX [Concomitant]
     Indication: BENIGN PROSTATIC HYPERPLASIA
     Dosage: OMIX LP

REACTIONS (1)
  - PANCREATITIS ACUTE [None]
